FAERS Safety Report 16485064 (Version 1)
Quarter: 2019Q2

REPORT INFORMATION
  Report Type: Spontaneous
  Country: DE (occurrence: DE)
  Receive Date: 20190627
  Receipt Date: 20190627
  Transmission Date: 20190711
  Serious: Yes (Hospitalization)
  Sender: FDA-Public Use
  Company Number: PHHY2019DE144225

PATIENT
  Age: 15 Year
  Sex: Female
  Weight: 66 kg

DRUGS (5)
  1. METAMIZOLE [Suspect]
     Active Substance: METAMIZOLE
     Indication: PRODUCT USED FOR UNKNOWN INDICATION
     Dosage: 40 GTT, QD
     Route: 065
     Dates: start: 20171101
  2. METHOTREXATE. [Suspect]
     Active Substance: METHOTREXATE
     Indication: PRODUCT USE IN UNAPPROVED INDICATION
     Dosage: 20 MG, QW
     Route: 065
     Dates: start: 20080101, end: 20181001
  3. BISOPROLOL [Suspect]
     Active Substance: BISOPROLOL
     Indication: MIGRAINE
     Dosage: 20 MG, QD
     Route: 065
     Dates: start: 20171101
  4. HUMIRA [Suspect]
     Active Substance: ADALIMUMAB
     Indication: JUVENILE IDIOPATHIC ARTHRITIS
     Dosage: 40 MG, Q2W
     Route: 058
     Dates: start: 20160329, end: 20180630
  5. FLUOXETINE [Suspect]
     Active Substance: FLUOXETINE HYDROCHLORIDE
     Indication: PRODUCT USED FOR UNKNOWN INDICATION
     Dosage: 20 MG, UNK
     Route: 065
     Dates: start: 20170101

REACTIONS (5)
  - Iridocyclitis [Not Recovered/Not Resolved]
  - Depression [Not Recovered/Not Resolved]
  - Juvenile idiopathic arthritis [Unknown]
  - Drug specific antibody present [Unknown]
  - Migraine [Not Recovered/Not Resolved]

NARRATIVE: CASE EVENT DATE: 201711
